FAERS Safety Report 9201611 (Version 1)
Quarter: 2013Q2

REPORT INFORMATION
  Report Type: Spontaneous
  Country: ES (occurrence: ES)
  Receive Date: 20130401
  Receipt Date: 20130401
  Transmission Date: 20140414
  Serious: Yes (Death, Other)
  Sender: FDA-Public Use
  Company Number: ES-009507513-1303ESP005174

PATIENT
  Age: 48 Year
  Sex: Male
  Weight: 64 kg

DRUGS (6)
  1. INTRONA [Suspect]
     Indication: MALIGNANT MELANOMA
     Dosage: STRENGTH: 15 MIU/DAY, FREQUENCY: 15 MIU DAILY ON MONDAY, WEDNESDAY AND FRIDAY
     Route: 058
     Dates: start: 20090603
  2. INTRONA [Suspect]
     Dosage: STRENGTH: 7.5 MIU/DAY, FREQUENCY: 7.5 MIU DAILY ON MONDAY, WEDNESDAY AND FRIDAY
     Route: 058
     Dates: end: 20100507
  3. OMEPRAZOLE [Concomitant]
     Indication: PROPHYLAXIS AGAINST GASTROINTESTINAL ULCER
     Dosage: 20 MG, QD
     Route: 048
     Dates: end: 20111003
  4. ACETAMINOPHEN [Concomitant]
     Indication: PYREXIA
     Dosage: 1 GRAM IF FEVER, PRN
     Dates: start: 20090313, end: 20100507
  5. KEPPRA [Concomitant]
     Dosage: 500 MG, QD
     Dates: end: 20100522
  6. KEPPRA [Concomitant]
     Dosage: 250 MG, QD
     Dates: start: 20100522, end: 20100606

REACTIONS (2)
  - Malignant neoplasm progression [Fatal]
  - Epilepsy [Recovered/Resolved]
